FAERS Safety Report 22238108 (Version 2)
Quarter: 2023Q2

REPORT INFORMATION
  Report Type: Other
  Country: GB (occurrence: GB)
  Receive Date: 20230421
  Receipt Date: 20230512
  Transmission Date: 20230722
  Serious: Yes (Other)
  Sender: FDA-Public Use
  Company Number: GB-MACLEODS PHARMA EU LTD-MAC2023040862

PATIENT

DRUGS (1)
  1. PANTOPRAZOLE SODIUM [Suspect]
     Active Substance: PANTOPRAZOLE SODIUM
     Indication: Product used for unknown indication
     Dosage: 40 MILLIGRAM
     Route: 065

REACTIONS (51)
  - Lung neoplasm malignant [Unknown]
  - Brain neoplasm [Unknown]
  - Terminal state [Unknown]
  - COVID-19 [Unknown]
  - Fibromyalgia [Unknown]
  - Pain [Unknown]
  - Multimorbidity [Unknown]
  - Reversed hot-cold sensation [Unknown]
  - Pain in extremity [Unknown]
  - Chills [Unknown]
  - Cough [Unknown]
  - Ingrowing nail [Unknown]
  - Emphysema [Unknown]
  - Blindness [Unknown]
  - Feeling abnormal [Unknown]
  - Syncope [Unknown]
  - Oxygen saturation [Unknown]
  - Impaired healing [Unknown]
  - Angina pectoris [Unknown]
  - Burning sensation [Unknown]
  - Amnesia [Unknown]
  - Balance disorder [Unknown]
  - Infection [Unknown]
  - Hyperaesthesia [Unknown]
  - Tinnitus [Unknown]
  - Pulmonary mass [Unknown]
  - Hypoaesthesia [Unknown]
  - Musculoskeletal chest pain [Unknown]
  - Herpes zoster [Unknown]
  - Mental impairment [Unknown]
  - Stress [Unknown]
  - Neck pain [Unknown]
  - Oropharyngeal pain [Unknown]
  - Anxiety [Unknown]
  - Sensory loss [Unknown]
  - Feeling cold [Unknown]
  - Dyspnoea [Unknown]
  - Tachycardia [Unknown]
  - Heart rate increased [Unknown]
  - Chest pain [Unknown]
  - Temperature regulation disorder [Unknown]
  - Insomnia [Unknown]
  - Abdominal discomfort [Unknown]
  - Dry mouth [Not Recovered/Not Resolved]
  - Muscle spasms [Unknown]
  - Abdominal pain upper [Unknown]
  - Diarrhoea [Unknown]
  - Fatigue [Unknown]
  - Pruritus [Unknown]
  - Confusional state [Unknown]
  - Product use issue [Unknown]
